FAERS Safety Report 7880457-4 (Version None)
Quarter: 2011Q4

REPORT INFORMATION
  Report Type: 
  Country: None (occurrence: None)
  Receive Date: 20111101
  Receipt Date: 20111026
  Transmission Date: 20120403
  Serious: Yes (Other)
  Sender: FDA-Public Use
  Company Number: PHHY2011NO94273

PATIENT
  Sex: Female

DRUGS (2)
  1. EXELON [Suspect]
     Dosage: 4 DF,
  2. EXELON [Suspect]
     Indication: DEMENTIA
     Dosage: 9.5 MG/24 HOURS
     Route: 062

REACTIONS (5)
  - SYNCOPE [None]
  - CARDIAC ARREST [None]
  - VOMITING [None]
  - WRONG TECHNIQUE IN DRUG USAGE PROCESS [None]
  - NAUSEA [None]
